FAERS Safety Report 11534274 (Version 1)
Quarter: 2015Q3

REPORT INFORMATION
  Report Type: Spontaneous
  Country: US (occurrence: US)
  Receive Date: 20150922
  Receipt Date: 20150922
  Transmission Date: 20151125
  Serious: No
  Sender: FDA-Public Use
  Company Number: US-BEH-2015051211

PATIENT
  Age: 52 Year
  Sex: Female
  Weight: 68 kg

DRUGS (5)
  1. ALBURX [Suspect]
     Active Substance: ALBUMIN (HUMAN)
     Indication: FLUID REPLACEMENT
     Route: 042
     Dates: start: 20150429, end: 20150429
  2. ALBURX [Suspect]
     Active Substance: ALBUMIN (HUMAN)
     Indication: NEUROPATHY PERIPHERAL
     Route: 042
     Dates: start: 20150527, end: 20150527
  3. ALBURX [Suspect]
     Active Substance: ALBUMIN (HUMAN)
     Indication: PLASMAPHERESIS
     Dosage: 1 VOLUME EXCHANGE USING PLASMAPHERESIS (ARM GRAFT), 5 BOTTLES; 9:14 AM TO 10:10 AM
     Route: 042
     Dates: start: 20150513, end: 20150513
  4. EFFEXOR [Concomitant]
     Active Substance: VENLAFAXINE HYDROCHLORIDE
     Dates: end: 20150509
  5. TRAZODONE [Concomitant]
     Active Substance: TRAZODONE HYDROCHLORIDE
     Dates: end: 20150509

REACTIONS (3)
  - Hypoaesthesia [Recovered/Resolved]
  - Paraesthesia [Recovered/Resolved]
  - Dizziness [Recovered/Resolved]

NARRATIVE: CASE EVENT DATE: 20150513
